FAERS Safety Report 18009879 (Version 2)
Quarter: 2020Q4

REPORT INFORMATION
  Report Type: Spontaneous
  Country: US (occurrence: US)
  Receive Date: 20200710
  Receipt Date: 20201105
  Transmission Date: 20210113
  Serious: No
  Sender: FDA-Public Use
  Company Number: US-SA-2020SA177859

PATIENT

DRUGS (2)
  1. DUPIXENT [Suspect]
     Active Substance: DUPILUMAB
     Indication: ASTHMA
     Dosage: 600 MG, 1X
     Route: 058
     Dates: start: 20200707, end: 20200707
  2. DUPIXENT [Suspect]
     Active Substance: DUPILUMAB
     Indication: SKIN DISORDER
     Dosage: 300 MG, QOW
     Route: 058
     Dates: start: 2020

REACTIONS (4)
  - Product use in unapproved indication [Unknown]
  - Somnolence [Unknown]
  - Vision blurred [Not Recovered/Not Resolved]
  - Product use issue [Unknown]

NARRATIVE: CASE EVENT DATE: 2020
